FAERS Safety Report 8065847-1 (Version None)
Quarter: 2012Q1

REPORT INFORMATION
  Report Type: 
  Country: None (occurrence: None)
  Receive Date: 20120124
  Receipt Date: 20120116
  Transmission Date: 20120608
  Serious: Yes (Life-Threatening, Hospitalization, Other)
  Sender: FDA-Public Use
  Company Number: FR-BRISTOL-MYERS SQUIBB COMPANY-16317562

PATIENT
  Age: 78 Year
  Sex: Female

DRUGS (3)
  1. CORGARD [Suspect]
     Indication: ARRHYTHMIA
     Route: 048
     Dates: end: 20111116
  2. CORDARONE [Suspect]
     Indication: ARRHYTHMIA
     Dosage: TAB
     Route: 048
     Dates: end: 20110101
  3. FLECAINIDE ACETATE [Suspect]
     Indication: ARRHYTHMIA
     Route: 048
     Dates: end: 20111116

REACTIONS (2)
  - CARDIAC ARREST [None]
  - VENTRICULAR ARRHYTHMIA [None]
